FAERS Safety Report 7165123-5 (Version None)
Quarter: 2010Q4

REPORT INFORMATION
  Report Type: 
  Country: None (occurrence: None)
  Receive Date: 20101215
  Receipt Date: 20091217
  Transmission Date: 20110411
  Serious: No
  Sender: FDA-Public Use
  Company Number: US-AMGEN-TCS381252

PATIENT

DRUGS (1)
  1. ENBREL [Suspect]
     Indication: JUVENILE ARTHRITIS
     Dosage: UNK UNK, UNK
     Dates: start: 20071115

REACTIONS (5)
  - COUGH [None]
  - DIARRHOEA [None]
  - JOINT EFFUSION [None]
  - RHINORRHOEA [None]
  - VOMITING [None]
